FAERS Safety Report 19170345 (Version 1)
Quarter: 2021Q2

REPORT INFORMATION
  Report Type: Spontaneous
  Country: US (occurrence: US)
  Receive Date: 20210422
  Receipt Date: 20210422
  Transmission Date: 20210717
  Serious: No
  Sender: FDA-Public Use
  Company Number: US-PFIZER INC-2021401529

PATIENT
  Age: 63 Year
  Sex: Female

DRUGS (19)
  1. ALBUTEROL SULFATE. [Concomitant]
     Active Substance: ALBUTEROL SULFATE
  2. SYMBICORT [Concomitant]
     Active Substance: BUDESONIDE\FORMOTEROL FUMARATE DIHYDRATE
  3. VITAMIN B12 [Concomitant]
     Active Substance: CYANOCOBALAMIN
  4. VITAMIN E [Concomitant]
     Active Substance: .ALPHA.-TOCOPHEROL
  5. IBRANCE [Suspect]
     Active Substance: PALBOCICLIB
     Indication: BREAST CANCER
     Dosage: 100 MG, DAILY FOR 21 DAYS
     Route: 048
     Dates: start: 20201229
  6. IMODIUM A?D [Concomitant]
     Active Substance: LOPERAMIDE HYDROCHLORIDE
  7. MIRTAZAPINE. [Concomitant]
     Active Substance: MIRTAZAPINE
  8. FAMOTIDINE. [Concomitant]
     Active Substance: FAMOTIDINE
  9. LORAZEPAM. [Concomitant]
     Active Substance: LORAZEPAM
  10. PROCHLORPERAZINE MALEATE. [Concomitant]
     Active Substance: PROCHLORPERAZINE MALEATE
  11. KLOR?CON [Concomitant]
     Active Substance: POTASSIUM CHLORIDE
  12. ASPIRIN EC [Concomitant]
     Active Substance: ASPIRIN
  13. METOPROLOL SUCCINATE. [Concomitant]
     Active Substance: METOPROLOL SUCCINATE
  14. ONDANSETRON [Concomitant]
     Active Substance: ONDANSETRON
  15. AMLODIPINE BESYLATE. [Concomitant]
     Active Substance: AMLODIPINE BESYLATE
  16. ANASTRAZOLE DENK [Concomitant]
     Active Substance: ANASTROZOLE
  17. CALTRATE PLUS?D [Concomitant]
  18. HYDROCODONE/ACETAMINOPHEN [Concomitant]
     Active Substance: ACETAMINOPHEN\HYDROCODONE
  19. LISINOPRIL. [Concomitant]
     Active Substance: LISINOPRIL

REACTIONS (1)
  - Constipation [Unknown]
